FAERS Safety Report 25409728 (Version 1)
Quarter: 2025Q2

REPORT INFORMATION
  Report Type: Spontaneous
  Country: US (occurrence: US)
  Receive Date: 20250607
  Receipt Date: 20250607
  Transmission Date: 20250717
  Serious: No
  Sender: RIGEL PHARMACEUTICALS
  Company Number: US-RIGEL Pharmaceuticals, INC-20241200067

PATIENT
  Sex: Male

DRUGS (1)
  1. TAVALISSE [Suspect]
     Active Substance: FOSTAMATINIB
     Indication: Immune thrombocytopenia
     Dosage: 150MG BID
     Route: 048

REACTIONS (5)
  - Addison^s disease [Unknown]
  - Autoimmune thyroiditis [Unknown]
  - Diabetes mellitus [Unknown]
  - Headache [Unknown]
  - Product dose omission issue [Unknown]
